FAERS Safety Report 7502925-7 (Version None)
Quarter: 2011Q2

REPORT INFORMATION
  Report Type: 
  Country: None (occurrence: None)
  Receive Date: 20110518
  Receipt Date: 20110504
  Transmission Date: 20111010
  Serious: Yes (Disabling, Other)
  Sender: FDA-Public Use
  Company Number: ALA_00967_2010

PATIENT
  Sex: Female
  Weight: 53.5244 kg

DRUGS (74)
  1. LEXAPRO [Concomitant]
  2. PROMETHAZINE [Concomitant]
  3. ASPIRIN [Concomitant]
  4. METOPROLOL SUCCINATE [Concomitant]
  5. ZYRTEC [Concomitant]
  6. PAXIL CR [Concomitant]
  7. MIRAPEX [Concomitant]
  8. TAGAMET /00397401/ [Concomitant]
  9. RANITIDINE [Concomitant]
  10. DOXEPIN [Concomitant]
  11. UNSPECIFIED DIETARY SUPPLEMENTS [Concomitant]
  12. MECLIZINE /00072801/ [Concomitant]
  13. EFFEXOR [Concomitant]
  14. HEPARIN [Concomitant]
  15. ZITHROMAX [Concomitant]
  16. CELEXA [Concomitant]
  17. FLONASE [Concomitant]
  18. SPIRONOLACTONE [Concomitant]
  19. ATROPA BELLADONNA EXTRACT W/PHENOBARBITAL [Concomitant]
  20. CIPRO [Concomitant]
  21. METFORMIN HCL [Concomitant]
  22. PREVACID [Concomitant]
  23. SERTRALINE HYDROCHLORIDE [Concomitant]
  24. PRAVACHOL [Concomitant]
  25. AMIODARONE HCL [Concomitant]
  26. COLACE [Concomitant]
  27. HADOL /00027401/ [Concomitant]
  28. OCUFLOX [Concomitant]
  29. ACULAR [Concomitant]
  30. ERYTHROMYCIN [Concomitant]
  31. PANTOPRAZOLE [Concomitant]
  32. PRAVASTATIN [Concomitant]
  33. CARBIDOPA AND LEVODOPA [Concomitant]
  34. NEXIUM [Concomitant]
  35. GABAPENTIN [Concomitant]
  36. RESTASIS [Concomitant]
  37. REGLAN [Suspect]
     Indication: GASTROOESOPHAGEAL REFLUX DISEASE
     Dosage: SEE IMAGE
     Route: 048
     Dates: start: 20010326
  38. REGLAN [Suspect]
     Indication: GASTROOESOPHAGEAL REFLUX DISEASE
     Dosage: SEE IMAGE
     Route: 048
     Dates: start: 20080623, end: 20080813
  39. REGLAN [Suspect]
     Indication: GASTROOESOPHAGEAL REFLUX DISEASE
     Dosage: SEE IMAGE
     Route: 048
     Dates: start: 20010512, end: 20010618
  40. REGLAN [Suspect]
     Indication: GASTROOESOPHAGEAL REFLUX DISEASE
     Dosage: SEE IMAGE
     Route: 048
     Dates: start: 20081110, end: 20090611
  41. REGLAN [Suspect]
     Indication: GASTROOESOPHAGEAL REFLUX DISEASE
     Dosage: SEE IMAGE
     Route: 048
     Dates: start: 20010401, end: 20010501
  42. REGLAN [Suspect]
     Indication: GASTROOESOPHAGEAL REFLUX DISEASE
     Dosage: SEE IMAGE
     Route: 048
     Dates: start: 20040914, end: 20050214
  43. REGLAN [Suspect]
     Indication: GASTROOESOPHAGEAL REFLUX DISEASE
     Dosage: SEE IMAGE
     Route: 048
     Dates: start: 20070724, end: 20071203
  44. REGLAN [Suspect]
     Indication: GASTROOESOPHAGEAL REFLUX DISEASE
     Dosage: SEE IMAGE
     Route: 048
     Dates: start: 20010501
  45. REGLAN [Suspect]
     Indication: GASTROOESOPHAGEAL REFLUX DISEASE
     Dosage: SEE IMAGE
     Route: 048
     Dates: end: 20071123
  46. REGLAN [Suspect]
     Indication: GASTROOESOPHAGEAL REFLUX DISEASE
     Dosage: SEE IMAGE
     Route: 048
     Dates: start: 20010725, end: 20010910
  47. REGLAN [Suspect]
     Indication: GASTROOESOPHAGEAL REFLUX DISEASE
     Dosage: SEE IMAGE
     Route: 048
     Dates: start: 20080213, end: 20080421
  48. CITRUCEL [Concomitant]
  49. NITROSTAT [Concomitant]
  50. GLYCOLAX [Concomitant]
  51. K-DUR [Concomitant]
  52. PAROXETINE [Concomitant]
  53. ACIPHEX [Concomitant]
  54. AMITRIPTYLINE HCL [Concomitant]
  55. POTASSIUM CHLORIDE [Concomitant]
  56. PREDNISONE [Concomitant]
  57. PROPOXYPHENE HCL AND ACETAMINOPHEN [Concomitant]
  58. AUGMENTIN '125' [Concomitant]
  59. CARDURA [Concomitant]
  60. LORAZEPAM [Concomitant]
  61. DIAZEPAM [Concomitant]
  62. ATENOLOL [Concomitant]
  63. BUMETANIDE [Concomitant]
  64. NASONEX [Concomitant]
  65. TYLENOL (CAPLET) [Concomitant]
  66. PROTONIX [Concomitant]
  67. DIPHENHYDRAMINE HCL [Concomitant]
  68. SERZONE [Concomitant]
  69. TRAZODONE HCL [Concomitant]
  70. TOPROL-XL [Concomitant]
  71. AMOXICILLIN [Concomitant]
  72. SODIUM CHLORIDE [Concomitant]
  73. PROCHLORPERAZINE TAB [Concomitant]
  74. DOCUSATE SODIUM [Concomitant]

REACTIONS (35)
  - AKATHISIA [None]
  - GAIT DISTURBANCE [None]
  - MOVEMENT DISORDER [None]
  - EMOTIONAL DISORDER [None]
  - GRIMACING [None]
  - EXCESSIVE EYE BLINKING [None]
  - VISUAL IMPAIRMENT [None]
  - ABDOMINAL DISTENSION [None]
  - ARTHRALGIA [None]
  - EXTRAPYRAMIDAL DISORDER [None]
  - TREMOR [None]
  - ECONOMIC PROBLEM [None]
  - INJURY [None]
  - PAIN [None]
  - HAEMOPTYSIS [None]
  - INSOMNIA [None]
  - TARDIVE DYSKINESIA [None]
  - NERVOUS SYSTEM DISORDER [None]
  - ANXIETY [None]
  - RESPIRATORY DISORDER [None]
  - DYSPHAGIA [None]
  - PLEURAL EFFUSION [None]
  - ATRIAL FIBRILLATION [None]
  - PULMONARY FIBROSIS [None]
  - ABDOMINAL PAIN [None]
  - HEART RATE DECREASED [None]
  - MYOCLONUS [None]
  - THORACIC HAEMORRHAGE [None]
  - VISION BLURRED [None]
  - PROTRUSION TONGUE [None]
  - HEART RATE IRREGULAR [None]
  - PLEURAL FIBROSIS [None]
  - PULMONARY EMBOLISM [None]
  - SUPRAVENTRICULAR EXTRASYSTOLES [None]
  - GROIN PAIN [None]
